FAERS Safety Report 8209805-2 (Version None)
Quarter: 2012Q1

REPORT INFORMATION
  Report Type: 
  Country: None (occurrence: None)
  Receive Date: 20120314
  Receipt Date: 20120309
  Transmission Date: 20120608
  Serious: Yes (Other)
  Sender: FDA-Public Use
  Company Number: US-TEVA-327404USA

PATIENT
  Sex: Female

DRUGS (1)
  1. COPAXONE [Suspect]
     Indication: MULTIPLE SCLEROSIS
     Dosage: 20 MILLIGRAM;
     Route: 058

REACTIONS (6)
  - DYSPNOEA [None]
  - FLUSHING [None]
  - THROAT TIGHTNESS [None]
  - CHEST DISCOMFORT [None]
  - IMMEDIATE POST-INJECTION REACTION [None]
  - CHILLS [None]
